FAERS Safety Report 9059720 (Version 2)
Quarter: 2013Q3

REPORT INFORMATION
  Report Type: Spontaneous
  Country: PT (occurrence: PT)
  Receive Date: 20130211
  Receipt Date: 20130716
  Transmission Date: 20140515
  Serious: Yes (Disabling)
  Sender: FDA-Public Use
  Company Number: PT-TEVA-384533ISR

PATIENT
  Age: 6 Year
  Sex: Female
  Weight: 22 kg

DRUGS (1)
  1. AMOXICILINA + ACIDO CLAVULANICO RATIOPHARM 400MG/5ML + 57MG/5 ML PO P/ [Suspect]
     Indication: ACUTE TONSILLITIS
     Dosage: 400MG/5ML + 57MG/5 ML
     Route: 048
     Dates: start: 20130118, end: 20130124

REACTIONS (8)
  - Urticaria [Recovered/Resolved]
  - Rash pruritic [Recovered/Resolved]
  - Rash generalised [Recovered/Resolved]
  - Oedema peripheral [Recovered/Resolved]
  - Oedema peripheral [Recovered/Resolved]
  - Arthralgia [Recovered/Resolved]
  - Pyrexia [Recovered/Resolved]
  - Insomnia [Recovered/Resolved]
